FAERS Safety Report 4872044-7 (Version None)
Quarter: 2006Q1

REPORT INFORMATION
  Report Type: 
  Country: None (occurrence: None)
  Receive Date: 20060104
  Receipt Date: 20050929
  Transmission Date: 20060701
  Serious: Yes (Other)
  Sender: FDA-Public Use
  Company Number: US-KINGPHARMUSA00001-K200501272

PATIENT
  Age: 72 Year
  Sex: Female

DRUGS (2)
  1. ALTACE [Suspect]
     Indication: BLOOD PRESSURE ABNORMAL
     Dosage: 20 MG, QD
     Route: 048
     Dates: start: 20040829, end: 20050909
  2. GLICLAZIDE [Concomitant]
     Indication: DIABETES MELLITUS
     Dosage: UNK, UNK

REACTIONS (6)
  - ANGIONEUROTIC OEDEMA [None]
  - ASTHENIA [None]
  - COUGH [None]
  - ERUCTATION [None]
  - HYPERTENSION [None]
  - SWOLLEN TONGUE [None]
